FAERS Safety Report 6812697-7 (Version None)
Quarter: 2010Q3

REPORT INFORMATION
  Report Type: 
  Country: None (occurrence: None)
  Receive Date: 20100701
  Receipt Date: 20100622
  Transmission Date: 20110219
  Serious: Yes (Other)
  Sender: FDA-Public Use
  Company Number: US-WYE-H15889210

PATIENT
  Age: 17 Year
  Sex: Female

DRUGS (2)
  1. PRISTIQ [Suspect]
     Indication: ANXIETY
     Dosage: ^LESS THAN 50 MG ONCE DAILY^ AND INCREASED TO AN UNKNOWN DOSE ON AN UNKNOWN DATE
     Route: 048
  2. PRISTIQ [Suspect]
     Indication: MAJOR DEPRESSION

REACTIONS (2)
  - DISSOCIATION [None]
  - SUICIDAL IDEATION [None]
